FAERS Safety Report 25426097 (Version 1)
Quarter: 2025Q2

REPORT INFORMATION
  Report Type: Report from Study
  Country: US (occurrence: US)
  Receive Date: 20250612
  Receipt Date: 20250612
  Transmission Date: 20250716
  Serious: Yes (Hospitalization)
  Sender: ABBVIE
  Company Number: US-ABBVIE-6322171

PATIENT
  Age: 67 Year
  Sex: Female

DRUGS (1)
  1. RINVOQ [Suspect]
     Active Substance: UPADACITINIB
     Indication: Psoriatic arthropathy
     Dosage: STRENGTH:15MG?MISSED 3 WEEKS DOSE
     Route: 048
     Dates: start: 20231112

REACTIONS (1)
  - Limb reconstructive surgery [Recovering/Resolving]

NARRATIVE: CASE EVENT DATE: 20250404
